FAERS Safety Report 17370763 (Version 73)
Quarter: 2025Q2

REPORT INFORMATION
  Report Type: Report from Study
  Country: US (occurrence: US)
  Receive Date: 20200205
  Receipt Date: 20250607
  Transmission Date: 20250717
  Serious: Yes (Other)
  Sender: TAKEDA
  Company Number: US-SHIRE-US202004220

PATIENT
  Age: 3 Year
  Sex: Male

DRUGS (25)
  1. ADVATE [Suspect]
     Active Substance: ANTIHEMOPHILIC FACTOR, HUMAN RECOMBINANT
     Indication: Haemorrhage
  2. ADVATE [Suspect]
     Active Substance: ANTIHEMOPHILIC FACTOR, HUMAN RECOMBINANT
  3. ADVATE [Suspect]
     Active Substance: ANTIHEMOPHILIC FACTOR, HUMAN RECOMBINANT
  4. ADVATE [Suspect]
     Active Substance: ANTIHEMOPHILIC FACTOR, HUMAN RECOMBINANT
  5. ADVATE [Suspect]
     Active Substance: ANTIHEMOPHILIC FACTOR, HUMAN RECOMBINANT
     Dosage: 750 INTERNATIONAL UNIT, 3/WEEK
  6. ADVATE [Suspect]
     Active Substance: ANTIHEMOPHILIC FACTOR, HUMAN RECOMBINANT
  7. ADVATE [Suspect]
     Active Substance: ANTIHEMOPHILIC FACTOR, HUMAN RECOMBINANT
     Dosage: 1578 INTERNATIONAL UNIT, 3/WEEK
  8. ADVATE [Suspect]
     Active Substance: ANTIHEMOPHILIC FACTOR, HUMAN RECOMBINANT
  9. ADVATE [Suspect]
     Active Substance: ANTIHEMOPHILIC FACTOR, HUMAN RECOMBINANT
     Dosage: 750 INTERNATIONAL UNIT, 2/WEEK
  10. ADVATE [Suspect]
     Active Substance: ANTIHEMOPHILIC FACTOR, HUMAN RECOMBINANT
     Dosage: 1500 INTERNATIONAL UNIT, 2/WEEK
  11. ADVATE [Suspect]
     Active Substance: ANTIHEMOPHILIC FACTOR, HUMAN RECOMBINANT
     Dosage: 1500 INTERNATIONAL UNIT, 1/WEEK
  12. ADVATE [Suspect]
     Active Substance: ANTIHEMOPHILIC FACTOR, HUMAN RECOMBINANT
  13. ADVATE [Suspect]
     Active Substance: ANTIHEMOPHILIC FACTOR, HUMAN RECOMBINANT
  14. ADVATE [Suspect]
     Active Substance: ANTIHEMOPHILIC FACTOR, HUMAN RECOMBINANT
  15. ADVATE [Suspect]
     Active Substance: ANTIHEMOPHILIC FACTOR, HUMAN RECOMBINANT
  16. ADVATE [Suspect]
     Active Substance: ANTIHEMOPHILIC FACTOR, HUMAN RECOMBINANT
  17. ADVATE [Suspect]
     Active Substance: ANTIHEMOPHILIC FACTOR, HUMAN RECOMBINANT
     Dosage: 1000 INTERNATIONAL UNIT, 3/WEEK
  18. ADVATE [Suspect]
     Active Substance: ANTIHEMOPHILIC FACTOR, HUMAN RECOMBINANT
  19. ADVATE [Suspect]
     Active Substance: ANTIHEMOPHILIC FACTOR, HUMAN RECOMBINANT
     Dosage: 1000 INTERNATIONAL UNIT, 2/WEEK
  20. ADVATE [Suspect]
     Active Substance: ANTIHEMOPHILIC FACTOR, HUMAN RECOMBINANT
     Dosage: 1000 INTERNATIONAL UNIT, 2/WEEK
  21. ADVATE [Suspect]
     Active Substance: ANTIHEMOPHILIC FACTOR, HUMAN RECOMBINANT
  22. ADVATE [Suspect]
     Active Substance: ANTIHEMOPHILIC FACTOR, HUMAN RECOMBINANT
  23. ADVATE [Suspect]
     Active Substance: ANTIHEMOPHILIC FACTOR, HUMAN RECOMBINANT
  24. ADVATE [Suspect]
     Active Substance: ANTIHEMOPHILIC FACTOR, HUMAN RECOMBINANT
  25. MUPIROCIN [Concomitant]
     Active Substance: MUPIROCIN

REACTIONS (63)
  - Muscle haemorrhage [Unknown]
  - Contusion [Not Recovered/Not Resolved]
  - Haemorrhage [Recovered/Resolved]
  - Bone contusion [Recovering/Resolving]
  - Mouth haemorrhage [Unknown]
  - Thrombosis [Unknown]
  - Ecchymosis [Unknown]
  - Haemarthrosis [Recovered/Resolved]
  - Haematoma [Recovered/Resolved]
  - Body temperature abnormal [Unknown]
  - Pharyngitis streptococcal [Unknown]
  - Otitis externa [Unknown]
  - Ear infection bacterial [Unknown]
  - Molluscum contagiosum [Unknown]
  - Joint injury [Unknown]
  - Joint range of motion decreased [Unknown]
  - Bronchitis [Unknown]
  - Peripheral swelling [Recovered/Resolved]
  - Papilloma viral infection [Recovering/Resolving]
  - Poor venous access [Recovered/Resolved]
  - Fall [Unknown]
  - Neck injury [Unknown]
  - Swelling [Unknown]
  - Tongue biting [Recovered/Resolved]
  - Suspected COVID-19 [Recovered/Resolved]
  - Urinary tract infection [Recovered/Resolved]
  - Ear pain [Unknown]
  - Injury [Unknown]
  - Head injury [Unknown]
  - Obstruction [Unknown]
  - Rhinorrhoea [Unknown]
  - Pain in extremity [Unknown]
  - Gait disturbance [Unknown]
  - Scab [Unknown]
  - Joint swelling [Unknown]
  - Neck pain [Unknown]
  - Joint warmth [Unknown]
  - Skin abrasion [Unknown]
  - Back pain [Unknown]
  - Streptococcal infection [Unknown]
  - Feeling hot [Unknown]
  - Ligament sprain [Unknown]
  - Pain [Unknown]
  - Sports injury [Unknown]
  - Skin laceration [Unknown]
  - Nasal congestion [Unknown]
  - Upper respiratory tract infection [Unknown]
  - Ear infection [Unknown]
  - Cough [Unknown]
  - Limb injury [Not Recovered/Not Resolved]
  - Oropharyngeal pain [Unknown]
  - Arthralgia [Not Recovered/Not Resolved]
  - Erythema [Unknown]
  - Nasopharyngitis [Unknown]
  - Asthenia [Unknown]
  - Oedema peripheral [Unknown]
  - Influenza [Recovering/Resolving]
  - Vomiting [Unknown]
  - Dizziness [Unknown]
  - Rash [Unknown]
  - Pyrexia [Recovered/Resolved]
  - Diarrhoea [Recovered/Resolved]
  - Headache [Unknown]

NARRATIVE: CASE EVENT DATE: 20200129
